FAERS Safety Report 13636920 (Version 1)
Quarter: 2017Q2

REPORT INFORMATION
  Report Type: Spontaneous
  Country: US (occurrence: US)
  Receive Date: 20170531
  Receipt Date: 20170531
  Transmission Date: 20170830
  Serious: No
  Sender: FDA-Public Use
  Company Number: US-ASTELLAS-782275

PATIENT
  Age: 82 Year
  Sex: Female
  Weight: 64.9 kg

DRUGS (8)
  1. TARCEVA [Suspect]
     Active Substance: ERLOTINIB HYDROCHLORIDE
     Dosage: DOSE REDUCED
     Route: 048
  2. FLUCONAZOLE. [Concomitant]
     Active Substance: FLUCONAZOLE
     Route: 065
  3. MULTIVITAMIN [Concomitant]
     Active Substance: VITAMINS
     Route: 065
  4. POTASSIUM [Concomitant]
     Active Substance: POTASSIUM
     Route: 065
  5. TARCEVA [Suspect]
     Active Substance: ERLOTINIB HYDROCHLORIDE
     Indication: SQUAMOUS CELL CARCINOMA OF LUNG
     Route: 048
  6. OXYBUTYNIN [Concomitant]
     Active Substance: OXYBUTYNIN
     Route: 065
  7. ALLERGY MEDICATION NOS [Concomitant]
     Route: 065
  8. HYDROCHLOROTHIAZIDE. [Concomitant]
     Active Substance: HYDROCHLOROTHIAZIDE
     Route: 065

REACTIONS (4)
  - Fatigue [Unknown]
  - Dry skin [Unknown]
  - Rash [Recovered/Resolved]
  - Fatigue [Recovered/Resolved]

NARRATIVE: CASE EVENT DATE: 20110604
